FAERS Safety Report 15339092 (Version 1)
Quarter: 2018Q3

REPORT INFORMATION
  Report Type: Spontaneous
  Country: GB (occurrence: GB)
  Receive Date: 20180831
  Receipt Date: 20180831
  Transmission Date: 20181010
  Serious: Yes (Other)
  Sender: FDA-Public Use
  Company Number: GB-009507513-1808GBR013177

PATIENT
  Age: 86 Year
  Sex: Female

DRUGS (1)
  1. JANUVIA [Suspect]
     Active Substance: SITAGLIPTIN PHOSPHATE
     Indication: DIABETES MELLITUS
     Dosage: 50 MG, ONCE
     Route: 048

REACTIONS (2)
  - Circumstance or information capable of leading to medication error [Unknown]
  - Gastrostomy [Not Recovered/Not Resolved]

NARRATIVE: CASE EVENT DATE: 2018
